FAERS Safety Report 20976311 (Version 1)
Quarter: 2022Q2

REPORT INFORMATION
  Report Type: Spontaneous
  Country: CN (occurrence: CN)
  Receive Date: 20220617
  Receipt Date: 20220617
  Transmission Date: 20220721
  Serious: Yes (Other)
  Sender: FDA-Public Use
  Company Number: CN-PFIZER INC-PV202200004053

PATIENT
  Age: 85 Year
  Sex: Male

DRUGS (3)
  1. LYRICA [Suspect]
     Active Substance: PREGABALIN
     Indication: Diabetic complication
     Dosage: 75 MG, 1X/DAY
     Route: 048
     Dates: start: 20220608, end: 20220608
  2. LYRICA [Suspect]
     Active Substance: PREGABALIN
     Indication: Hypoaesthesia
  3. LYRICA [Suspect]
     Active Substance: PREGABALIN
     Indication: Pain in extremity

REACTIONS (5)
  - Coma [Recovering/Resolving]
  - Miosis [Recovering/Resolving]
  - Pupillary reflex impaired [Recovering/Resolving]
  - Coordination abnormal [Recovering/Resolving]
  - Musculoskeletal stiffness [Recovering/Resolving]

NARRATIVE: CASE EVENT DATE: 20220608
